FAERS Safety Report 25009020 (Version 1)
Quarter: 2025Q1

REPORT INFORMATION
  Report Type: Spontaneous
  Country: FR (occurrence: FR)
  Receive Date: 20250225
  Receipt Date: 20250225
  Transmission Date: 20250409
  Serious: Yes (Other)
  Sender: AMGEN
  Company Number: FR-AMGEN-FRASP2025034933

PATIENT

DRUGS (4)
  1. ADALIMUMAB [Suspect]
     Active Substance: ADALIMUMAB
     Indication: Psoriasis
     Route: 065
  2. ADALIMUMAB [Suspect]
     Active Substance: ADALIMUMAB
     Indication: Ichthyosis
  3. ADALIMUMAB [Suspect]
     Active Substance: ADALIMUMAB
     Indication: Dermatitis atopic
  4. APREMILAST [Suspect]
     Active Substance: APREMILAST
     Indication: Ichthyosis
     Route: 065

REACTIONS (8)
  - Ichthyosis [Unknown]
  - Infection [Unknown]
  - Headache [Unknown]
  - Therapy non-responder [Unknown]
  - Therapeutic response unexpected [Unknown]
  - Abdominal pain [Unknown]
  - Drug ineffective [Unknown]
  - Off label use [Unknown]
